FAERS Safety Report 9312925 (Version 1)
Quarter: 2013Q2

REPORT INFORMATION
  Report Type: Spontaneous
  Country: GB (occurrence: GB)
  Receive Date: 20130528
  Receipt Date: 20130528
  Transmission Date: 20140414
  Serious: Yes (Hospitalization, Other)
  Sender: FDA-Public Use
  Company Number: GB-ASTRAZENECA-2013SE35034

PATIENT
  Age: 50 Year
  Sex: Female

DRUGS (2)
  1. TICAGRELOR [Suspect]
     Indication: ACUTE MYOCARDIAL INFARCTION
     Route: 048
     Dates: start: 20130319
  2. ASPIRIN [Suspect]
     Indication: CARDIOVASCULAR DISORDER
     Route: 048
     Dates: start: 20130319

REACTIONS (2)
  - Brain oedema [Recovered/Resolved]
  - Haematoma [Recovered/Resolved]
